FAERS Safety Report 24687026 (Version 1)
Quarter: 2024Q4

REPORT INFORMATION
  Report Type: Spontaneous
  Country: US (occurrence: US)
  Receive Date: 20241202
  Receipt Date: 20241202
  Transmission Date: 20250114
  Serious: No
  Sender: PFIZER
  Company Number: US-PFIZER INC-PV202400154880

PATIENT
  Age: 61 Year
  Sex: Female

DRUGS (3)
  1. XELJANZ XR [Suspect]
     Active Substance: TOFACITINIB CITRATE
     Indication: Rheumatoid arthritis
     Dosage: 11 MG, 1X/DAY
     Route: 048
     Dates: start: 20241001, end: 202410
  2. ENBREL [Concomitant]
     Active Substance: ETANERCEPT
     Dosage: ENBREL SURECLICK PF AUTOINJ
  3. RINVOQ [Concomitant]
     Active Substance: UPADACITINIB
     Dosage: RINVOQ ER

REACTIONS (1)
  - Blood test abnormal [Unknown]

NARRATIVE: CASE EVENT DATE: 20241001
